FAERS Safety Report 10924672 (Version 2)
Quarter: 2015Q2

REPORT INFORMATION
  Report Type: Spontaneous
  Country: US (occurrence: US)
  Receive Date: 20150318
  Receipt Date: 20150524
  Transmission Date: 20150821
  Serious: No
  Sender: FDA-Public Use
  Company Number: US-JNJFOC-20120607126

PATIENT
  Age: 45 Year
  Sex: Female
  Weight: 54.43 kg

DRUGS (4)
  1. NIZORAL A-D [Suspect]
     Active Substance: KETOCONAZOLE
     Route: 061
  2. CALCIUM [Concomitant]
     Active Substance: CALCIUM
     Route: 065
  3. NIZORAL A-D [Suspect]
     Active Substance: KETOCONAZOLE
     Indication: ALOPECIA
     Dosage: EVERY MORNING A QUATER SIZE
     Route: 061
     Dates: start: 2009
  4. ROGAIN [Concomitant]

REACTIONS (3)
  - Inappropriate schedule of drug administration [Unknown]
  - Seborrhoeic dermatitis [Unknown]
  - Drug prescribing error [Unknown]
